FAERS Safety Report 8309661-8 (Version None)
Quarter: 2012Q2

REPORT INFORMATION
  Report Type: 
  Country: None (occurrence: None)
  Receive Date: 20120425
  Receipt Date: 20120416
  Transmission Date: 20120825
  Serious: Yes (Hospitalization)
  Sender: FDA-Public Use
  Company Number: US-JNJFOC-20120407856

PATIENT
  Age: 87 Year
  Sex: Female
  Weight: 45.36 kg

DRUGS (5)
  1. FENTANYL-100 [Suspect]
     Indication: FIBROMYALGIA
     Route: 062
     Dates: start: 20050101, end: 20120301
  2. ALL OTHER THERAPEUTIC PRODUCTS [Concomitant]
     Indication: CARDIAC DISORDER
     Route: 065
  3. ANTIBIOITCS NOS [Suspect]
     Indication: GASTROINTESTINAL DISORDER
     Route: 065
     Dates: start: 20120401, end: 20120401
  4. FENTANYL-100 [Suspect]
     Indication: FIBROMYALGIA
     Route: 062
     Dates: start: 20120308
  5. ALPRAZOLAM [Concomitant]
     Indication: DEPRESSED MOOD
     Route: 048
     Dates: start: 19820101

REACTIONS (5)
  - CARDIAC DISORDER [None]
  - PAIN [None]
  - URINARY TRACT DISORDER [None]
  - RESTLESS LEGS SYNDROME [None]
  - GASTROINTESTINAL DISORDER [None]
